FAERS Safety Report 25769230 (Version 1)
Quarter: 2025Q3

REPORT INFORMATION
  Report Type: Spontaneous
  Country: US (occurrence: US)
  Receive Date: 20250906
  Receipt Date: 20250906
  Transmission Date: 20251020
  Serious: Yes (Other)
  Sender: ACCORD
  Company Number: US-Accord-502523

PATIENT
  Age: 78 Year
  Sex: Female

DRUGS (2)
  1. DECITABINE [Suspect]
     Active Substance: DECITABINE
     Indication: Chloroma
  2. VENETOCLAX [Suspect]
     Active Substance: VENETOCLAX
     Indication: Chloroma

REACTIONS (5)
  - Febrile neutropenia [Unknown]
  - Cholecystitis acute [Unknown]
  - Enterococcal infection [Unknown]
  - Urinary tract infection [Unknown]
  - Off label use [Unknown]
